FAERS Safety Report 24094788 (Version 1)
Quarter: 2024Q3

REPORT INFORMATION
  Report Type: Report from Study
  Country: IN (occurrence: None)
  Receive Date: 20240716
  Receipt Date: 20240716
  Transmission Date: 20241017
  Serious: Yes (Other)
  Sender: ENCUBE ETHICALS
  Company Number: IN-Encube-000820

PATIENT

DRUGS (3)
  1. HYDROCORTISONE [Suspect]
     Active Substance: HYDROCORTISONE\HYDROCORTISONE ACETATE
     Indication: Colitis ulcerative
  2. TOFACITINIB [Suspect]
     Active Substance: TOFACITINIB
     Indication: Colitis ulcerative
  3. ENOXAPARIN [Concomitant]
     Active Substance: ENOXAPARIN
     Indication: Thrombosis prophylaxis
     Dosage: 40 TO 60 MG
     Route: 058

REACTIONS (3)
  - Cerebral venous sinus thrombosis [Unknown]
  - Off label use [Unknown]
  - Haemorrhagic cerebral infarction [Unknown]
